FAERS Safety Report 10398776 (Version 2)
Quarter: 2014Q3

REPORT INFORMATION
  Report Type: Spontaneous
  Country: US (occurrence: US)
  Receive Date: 20140821
  Receipt Date: 20140919
  Transmission Date: 20150326
  Serious: No
  Sender: FDA-Public Use
  Company Number: US-PFIZER INC-2014229403

PATIENT
  Sex: Male

DRUGS (1)
  1. LYRICA [Suspect]
     Active Substance: PREGABALIN
     Dosage: LYRICA 4 TIMES PER DAY 100MG AND 50MG

REACTIONS (3)
  - Intentional product misuse [Unknown]
  - Condition aggravated [Unknown]
  - Neuropathy peripheral [Unknown]
